FAERS Safety Report 9830077 (Version 9)
Quarter: 2014Q3

REPORT INFORMATION
  Report Type: Report from Study
  Country: KR (occurrence: KR)
  Receive Date: 20140120
  Receipt Date: 20140723
  Transmission Date: 20150326
  Serious: Yes (Hospitalization)
  Sender: FDA-Public Use
  Company Number: KR-EISAI INC-E2007-01455-CLI-KR

PATIENT
  Age: 38 Year
  Sex: Female
  Weight: 64 kg

DRUGS (8)
  1. TOPIRAMATE. [Concomitant]
     Active Substance: TOPIRAMATE
     Route: 048
     Dates: start: 20131207
  2. OXCARBAZEPINE. [Concomitant]
     Active Substance: OXCARBAZEPINE
     Route: 048
     Dates: start: 20131206, end: 20140508
  3. E2007 [Suspect]
     Active Substance: PERAMPANEL
     Indication: PARTIAL SEIZURES
     Dosage: CORE PHASE - BLINDED
     Route: 048
     Dates: start: 20130227, end: 2013
  4. E2007 [Suspect]
     Active Substance: PERAMPANEL
     Route: 048
     Dates: start: 2013, end: 20131206
  5. TOPIRAMATE. [Concomitant]
     Active Substance: TOPIRAMATE
     Indication: EPILEPSY
     Route: 048
     Dates: start: 20061110, end: 20131205
  6. TOPIRAMATE. [Concomitant]
     Active Substance: TOPIRAMATE
     Route: 048
     Dates: start: 20131206, end: 20131206
  7. E2007 [Suspect]
     Active Substance: PERAMPANEL
     Dosage: CONVERSION PERIOD OF EXTENSION PHASE
     Route: 048
     Dates: start: 2013, end: 2013
  8. OXCARBAZEPINE. [Concomitant]
     Active Substance: OXCARBAZEPINE
     Route: 048
     Dates: start: 20140509

REACTIONS (2)
  - Bipolar disorder [Recovered/Resolved]
  - Thermal burn [Recovered/Resolved]

NARRATIVE: CASE EVENT DATE: 20130517
